FAERS Safety Report 25105377 (Version 1)
Quarter: 2025Q1

REPORT INFORMATION
  Report Type: Spontaneous
  Country: US (occurrence: None)
  Receive Date: 20250320
  Receipt Date: 20250320
  Transmission Date: 20250408
  Serious: Yes (Death, Hospitalization)
  Sender: FDA-CTU
  Company Number: None

PATIENT
  Age: 81 Year
  Sex: Male
  Weight: 65 kg

DRUGS (3)
  1. APIXABAN [Suspect]
     Active Substance: APIXABAN
     Indication: Atrial fibrillation
     Dosage: FREQUENCY : TWICE A DAY;?
     Route: 048
     Dates: start: 20231221
  2. APIXABAN [Suspect]
     Active Substance: APIXABAN
     Indication: Mitral valve replacement
  3. CLOPIDOGREL BISULFATE [Suspect]
     Active Substance: CLOPIDOGREL BISULFATE
     Indication: Coronary arterial stent insertion
     Dosage: FREQUENCY : DAILY;?
     Route: 048
     Dates: start: 20240413

REACTIONS (1)
  - Haematuria [None]

NARRATIVE: CASE EVENT DATE: 20250314
